FAERS Safety Report 5196528-X (Version None)
Quarter: 2006Q4

REPORT INFORMATION
  Report Type: 
  Country: None (occurrence: None)
  Receive Date: 20061227
  Receipt Date: 20061213
  Transmission Date: 20070319
  Serious: Yes (Other)
  Sender: FDA-Public Use
  Company Number: 2006-06177

PATIENT
  Age: 24 Year
  Sex: Male

DRUGS (6)
  1. ETOPOSIDE [Suspect]
     Indication: ACUTE PROMYELOCYTIC LEUKAEMIA
     Dosage: INTRAVENOUS
     Route: 042
  2. ETOPOSIDE [Suspect]
     Indication: LEUKAEMIA RECURRENT
     Dosage: INTRAVENOUS
     Route: 042
  3. CYCLOPHOSPHAMIDE [Suspect]
     Indication: ACUTE PROMYELOCYTIC LEUKAEMIA
     Dosage: 200 MG/KG, INTRAVENOUS
     Route: 042
  4. CYCLOPHOSPHAMIDE [Suspect]
     Indication: LEUKAEMIA RECURRENT
     Dosage: 200 MG/KG, INTRAVENOUS
     Route: 042
  5. TOTAL BODY RADIATION THERAPY () [Suspect]
     Indication: ACUTE PROMYELOCYTIC LEUKAEMIA
     Dosage: 12 GY IN 6 FRACTIONS,
  6. TOTAL BODY RADIATION THERAPY () [Suspect]
     Indication: LEUKAEMIA RECURRENT
     Dosage: 12 GY IN 6 FRACTIONS,

REACTIONS (1)
  - SALIVARY GLAND CANCER [None]
